FAERS Safety Report 6273530-8 (Version None)
Quarter: 2009Q3

REPORT INFORMATION
  Report Type: 
  Country: None (occurrence: None)
  Receive Date: 20090720
  Receipt Date: 20090708
  Transmission Date: 20100115
  Serious: Yes (Hospitalization)
  Sender: FDA-Public Use
  Company Number: AU-NOVOPROD-289161

PATIENT
  Age: 10 Day
  Sex: Female
  Weight: 4 kg

DRUGS (1)
  1. NOVOSEVEN [Suspect]
     Indication: SURGERY
     Dosage: 135 UG/KG, UNK
     Route: 042

REACTIONS (1)
  - THROMBOSIS IN DEVICE [None]
